FAERS Safety Report 24405438 (Version 1)
Quarter: 2024Q4

REPORT INFORMATION
  Report Type: Spontaneous
  Country: US (occurrence: US)
  Receive Date: 20241007
  Receipt Date: 20241007
  Transmission Date: 20250115
  Serious: No
  Sender: AMGEN
  Company Number: US-AMGEN-USASP2024194561

PATIENT
  Age: 66 Year
  Sex: Male

DRUGS (1)
  1. REPATHA [Suspect]
     Active Substance: EVOLOCUMAB
     Indication: Arterial occlusive disease
     Dosage: 140 MILLIGRAM, EVERY 15 DAYS
     Route: 065
     Dates: end: 20240918

REACTIONS (4)
  - Hyperhidrosis [Recovering/Resolving]
  - Fatigue [Unknown]
  - Drug hypersensitivity [Recovering/Resolving]
  - Heart rate increased [Unknown]

NARRATIVE: CASE EVENT DATE: 20240901
